FAERS Safety Report 19703941 (Version 1)
Quarter: 2021Q3

REPORT INFORMATION
  Report Type: Spontaneous
  Country: US (occurrence: US)
  Receive Date: 20210813
  Receipt Date: 20210813
  Transmission Date: 20211014
  Serious: No
  Sender: FDA-Public Use
  Company Number: None

PATIENT
  Age: 73 Year
  Sex: Female
  Weight: 75 kg

DRUGS (9)
  1. DIPHENOXYLATE?ATROPINE 2.5?0.025MG [Concomitant]
  2. ATENOLOL 25MG [Concomitant]
     Active Substance: ATENOLOL
  3. ATORVASTATIN 40MG [Concomitant]
     Active Substance: ATORVASTATIN
  4. COLESTIPOL 1GM [Concomitant]
     Active Substance: COLESTIPOL
  5. VITAMIN C [Concomitant]
     Active Substance: ASCORBIC ACID
  6. CALCIUM CARBONATE?VITAMIN D 600MG?400IU [Concomitant]
  7. NEXIUM 20MG [Concomitant]
  8. VITAMIN D 2000IU [Concomitant]
  9. CAPECITABINE. [Suspect]
     Active Substance: CAPECITABINE
     Indication: BREAST CANCER
     Dosage: ?          OTHER FREQUENCY:AM,1000MGPM 14/21;?
     Route: 048
     Dates: start: 20191102

REACTIONS (1)
  - Chest pain [None]

NARRATIVE: CASE EVENT DATE: 20210813
